FAERS Safety Report 5690722-7 (Version None)
Quarter: 2008Q2

REPORT INFORMATION
  Report Type: 
  Country: None (occurrence: None)
  Receive Date: 20080401
  Receipt Date: 20080319
  Transmission Date: 20081010
  Serious: Yes (Hospitalization)
  Sender: FDA-Public Use
  Company Number: US-ELI_LILLY_AND_COMPANY-US200803005082

PATIENT
  Sex: Male

DRUGS (2)
  1. CYMBALTA [Suspect]
  2. CIPRO [Concomitant]
     Indication: URINARY TRACT INFECTION

REACTIONS (1)
  - SEPSIS [None]
